FAERS Safety Report 7952483-8 (Version None)
Quarter: 2011Q4

REPORT INFORMATION
  Report Type: 
  Country: None (occurrence: None)
  Receive Date: 20111201
  Receipt Date: 20111127
  Transmission Date: 20120403
  Serious: Yes (Hospitalization)
  Sender: FDA-Public Use
  Company Number: US-AMGEN-USASP2011062566

PATIENT
  Age: 63 Year
  Sex: Male

DRUGS (1)
  1. ENBREL [Suspect]
     Indication: ANKYLOSING SPONDYLITIS
     Dosage: 100 MG, QWK
     Dates: start: 20080905, end: 20111022

REACTIONS (8)
  - PAIN IN EXTREMITY [None]
  - SYNCOPE [None]
  - WHITE BLOOD CELL COUNT INCREASED [None]
  - JOINT STIFFNESS [None]
  - ABSCESS LIMB [None]
  - FATIGUE [None]
  - SLUGGISHNESS [None]
  - BODY TEMPERATURE INCREASED [None]
